FAERS Safety Report 11849319 (Version 2)
Quarter: 2016Q1

REPORT INFORMATION
  Report Type: Spontaneous
  Country: US (occurrence: US)
  Receive Date: 20151218
  Receipt Date: 20160301
  Transmission Date: 20160526
  Serious: Yes (Other)
  Sender: FDA-Public Use
  Company Number: US-TEVA-619549ACC

PATIENT
  Age: 26 Year
  Sex: Female
  Weight: 64.92 kg

DRUGS (1)
  1. PARAGARD T 380A [Suspect]
     Active Substance: COPPER
     Indication: CONTRACEPTION
     Dates: start: 20151019, end: 20151207

REACTIONS (2)
  - Device dislocation [Recovered/Resolved]
  - Pelvic discomfort [Unknown]

NARRATIVE: CASE EVENT DATE: 20151203
